FAERS Safety Report 10196165 (Version 4)
Quarter: 2014Q3

REPORT INFORMATION
  Report Type: Report from Study
  Country: IT (occurrence: IT)
  Receive Date: 20140527
  Receipt Date: 20140708
  Transmission Date: 20150326
  Serious: Yes (Other)
  Sender: FDA-Public Use
  Company Number: IT-ROCHE-1406120

PATIENT
  Age: 10 Year
  Sex: Male

DRUGS (3)
  1. SOMATROPIN [Suspect]
     Active Substance: SOMATROPIN
     Indication: GROWTH HORMONE DEFICIENCY
     Dosage: STRENGTH 10MG/2ML
     Route: 058
     Dates: start: 20140428, end: 20140515
  2. SOMATROPIN [Suspect]
     Active Substance: SOMATROPIN
     Route: 065
     Dates: start: 20140616
  3. SOMATROPIN [Suspect]
     Active Substance: SOMATROPIN
     Dosage: 0.25MG/KG,
     Route: 058

REACTIONS (6)
  - Weight decreased [Unknown]
  - Erythema [Unknown]
  - Rash macular [Unknown]
  - Gastroenteritis [Unknown]
  - Urticaria [Unknown]
  - Rash [Unknown]

NARRATIVE: CASE EVENT DATE: 201405
